FAERS Safety Report 9106363 (Version 1)
Quarter: 2013Q1

REPORT INFORMATION
  Report Type: Spontaneous
  Country: MX (occurrence: MX)
  Receive Date: 20130221
  Receipt Date: 20130221
  Transmission Date: 20140127
  Serious: Yes (Death)
  Sender: FDA-Public Use
  Company Number: PHHY2013MX016545

PATIENT
  Age: 91 Year
  Sex: Male

DRUGS (1)
  1. STALEVO [Suspect]
     Indication: PARKINSON^S DISEASE
     Dosage: 4 DF (200 MG/150MG/37.5MG), DAILY
     Route: 048

REACTIONS (1)
  - Abdominal rigidity [Fatal]
